FAERS Safety Report 4635532-4 (Version None)
Quarter: 2005Q2

REPORT INFORMATION
  Report Type: 
  Country: None (occurrence: None)
  Receive Date: 20050414
  Receipt Date: 20050316
  Transmission Date: 20051028
  Serious: Yes (Death, Life-Threatening)
  Sender: FDA-Public Use
  Company Number: JP-MERCK-0503USA03585

PATIENT
  Age: 70 Year
  Sex: Female

DRUGS (19)
  1. PEPCID [Suspect]
     Indication: UPPER GASTROINTESTINAL HAEMORRHAGE
     Route: 042
     Dates: start: 20050221, end: 20050225
  2. BAKTAR [Suspect]
     Indication: PNEUMOCYSTIS JIROVECI PNEUMONIA
     Route: 048
     Dates: start: 20050221, end: 20050227
  3. PREDONINE [Concomitant]
     Route: 048
     Dates: start: 19980101, end: 20050220
  4. PREDONINE [Concomitant]
     Route: 042
     Dates: start: 20050204, end: 20050306
  5. LIPOVAS [Concomitant]
     Route: 048
     Dates: end: 20050220
  6. SELBEX [Concomitant]
     Route: 048
     Dates: end: 20050220
  7. ACINON [Concomitant]
     Route: 048
     Dates: end: 20050220
  8. FLUITRAN [Concomitant]
     Route: 048
     Dates: end: 20050220
  9. BLOPRESS [Concomitant]
     Route: 048
     Dates: end: 20050220
  10. LASIX [Concomitant]
     Route: 048
     Dates: end: 20050220
  11. PURSENNID [Concomitant]
     Route: 048
     Dates: end: 20050220
  12. ZOLPIDEM TARTRATE [Concomitant]
     Route: 048
     Dates: end: 20050220
  13. MAGNESIUM OXIDE [Concomitant]
     Route: 048
     Dates: end: 20050220
  14. PRODIF [Concomitant]
     Route: 042
     Dates: start: 20050219, end: 20050220
  15. PRODIF [Concomitant]
     Route: 042
     Dates: start: 20050221, end: 20050221
  16. SOLU-MEDROL [Concomitant]
     Route: 042
     Dates: start: 20050222, end: 20050223
  17. MUSCULAX [Concomitant]
     Route: 042
     Dates: start: 20050221, end: 20050221
  18. LEPETAN [Concomitant]
     Route: 042
     Dates: start: 20050221, end: 20050307
  19. DORMICUM (MIDAZOLAM) [Concomitant]
     Route: 042
     Dates: start: 20050221, end: 20050307

REACTIONS (12)
  - BACTERIAL INFECTION [None]
  - BRONCHOGRAM ABNORMAL [None]
  - CONDITION AGGRAVATED [None]
  - DISEASE PROGRESSION [None]
  - FUNGAL INFECTION [None]
  - INTERSTITIAL LUNG DISEASE [None]
  - LEUKOPENIA [None]
  - LUNG CONSOLIDATION [None]
  - LUNG DISORDER [None]
  - PLEURAL EFFUSION [None]
  - RESPIRATORY DISORDER [None]
  - THROMBOCYTOPENIA [None]
